FAERS Safety Report 20273088 (Version 1)
Quarter: 2022Q1

REPORT INFORMATION
  Report Type: Spontaneous
  Country: US (occurrence: None)
  Receive Date: 20220101
  Receipt Date: 20220101
  Transmission Date: 20220423
  Serious: No
  Sender: FDA-Public Use
  Company Number: 2021A867397

PATIENT
  Sex: Female
  Weight: 59 kg

DRUGS (1)
  1. SYMBICORT [Suspect]
     Active Substance: BUDESONIDE\FORMOTEROL FUMARATE DIHYDRATE
     Indication: Asthma
     Dosage: 160/4.5 MCG 120 INHALATIONS
     Route: 055

REACTIONS (3)
  - Product taste abnormal [Recovered/Resolved]
  - Throat irritation [Recovered/Resolved]
  - Intentional device misuse [Recovered/Resolved]
